FAERS Safety Report 6418735-8 (Version None)
Quarter: 2009Q4

REPORT INFORMATION
  Report Type: 
  Country: None (occurrence: None)
  Receive Date: 20091026
  Receipt Date: 20091014
  Transmission Date: 20100525
  Serious: Yes (Death, Hospitalization)
  Sender: FDA-Public Use
  Company Number: 2009AC000232

PATIENT
  Age: 47 Year
  Sex: Male

DRUGS (11)
  1. DIGOXIN [Suspect]
     Dosage: 0.25 MG; QD; PO
     Route: 048
     Dates: start: 20031101
  2. ATENOLOL [Concomitant]
  3. NITROGLYCERIN [Concomitant]
  4. PROTONIX [Concomitant]
  5. ASPIRIN [Concomitant]
  6. BUPROPION [Concomitant]
  7. NITROGLYCERIN [Concomitant]
  8. HYDROCHLOROTHIAIZIDE [Concomitant]
  9. TENORMIN [Concomitant]
  10. ZOLOFT [Concomitant]
  11. COREG [Concomitant]

REACTIONS (4)
  - CARDIAC MURMUR [None]
  - CEREBROVASCULAR ACCIDENT [None]
  - HEART RATE IRREGULAR [None]
  - INJURY [None]
